FAERS Safety Report 10776230 (Version 1)
Quarter: 2015Q1

REPORT INFORMATION
  Report Type: Spontaneous
  Country: US (occurrence: None)
  Receive Date: 20150205
  Receipt Date: 20150205
  Transmission Date: 20150721
  Serious: No
  Sender: FDA-Public Use
  Company Number: None

PATIENT
  Age: 64 Year
  Sex: Female
  Weight: 77.11 kg

DRUGS (2)
  1. ACETAMINOPHEN 8 HOUR [Suspect]
     Active Substance: ACETAMINOPHEN
     Indication: PAIN
     Dosage: 2 NIGHTS
  2. ACETAMINOPHEN 8 HOUR [Suspect]
     Active Substance: ACETAMINOPHEN
     Indication: SLEEP DISORDER
     Dosage: 2 NIGHTS

REACTIONS (1)
  - Insomnia [None]

NARRATIVE: CASE EVENT DATE: 20150202
